FAERS Safety Report 9331894 (Version 6)
Quarter: 2014Q2

REPORT INFORMATION
  Report Type: Spontaneous
  Country: US (occurrence: US)
  Receive Date: 20130605
  Receipt Date: 20140616
  Transmission Date: 20141212
  Serious: Yes (Hospitalization, Other)
  Sender: FDA-Public Use
  Company Number: US-009507513-1305USA017816

PATIENT
  Sex: Female
  Weight: 56.69 kg

DRUGS (8)
  1. FOSAMAX [Suspect]
     Indication: OSTEOPOROSIS
     Dosage: 10 MG, UNK
     Route: 048
     Dates: start: 199808, end: 200106
  2. FOSAMAX [Suspect]
     Dosage: 70 MG, QW
     Route: 048
     Dates: start: 200106, end: 200807
  3. FOSAMAX [Suspect]
     Dosage: UNK
     Route: 048
     Dates: start: 199508
  4. ALENDRONATE SODIUM [Suspect]
     Indication: OSTEOPOROSIS
     Dosage: 70 MG, UNK
     Route: 048
     Dates: start: 200807, end: 201007
  5. CALCIUM (UNSPECIFIED) [Concomitant]
     Dosage: 600 MG, BID
     Dates: start: 19980622
  6. CALCIUM (UNSPECIFIED) [Concomitant]
     Dosage: UNK
  7. ASPIRIN [Concomitant]
     Dosage: 81 MG, QD
     Dates: start: 2004
  8. VITAMIN D (UNSPECIFIED) [Concomitant]
     Dosage: 1000 IU, QD
     Dates: start: 2004

REACTIONS (18)
  - Femur fracture [Recovered/Resolved]
  - Intramedullary rod insertion [Recovered/Resolved]
  - Ovarian cancer [Unknown]
  - Blood potassium decreased [Unknown]
  - Blood chloride decreased [Unknown]
  - Haemoglobin decreased [Recovering/Resolving]
  - Salpingo-oophorectomy bilateral [Unknown]
  - Thalassaemia [Unknown]
  - Oral surgery [Unknown]
  - Hypertension [Unknown]
  - Hysterectomy [Unknown]
  - Microcytic anaemia [Unknown]
  - Hyperglycaemia [Unknown]
  - Osteopenia [Unknown]
  - Blood glucose increased [Unknown]
  - Osteopenia [Unknown]
  - Peptic ulcer [Unknown]
  - Gastrooesophageal reflux disease [Unknown]
